FAERS Safety Report 8902412 (Version 6)
Quarter: 2014Q2

REPORT INFORMATION
  Report Type: Spontaneous
  Country: US (occurrence: US)
  Receive Date: 20121112
  Receipt Date: 20140516
  Transmission Date: 20141212
  Serious: Yes (Disabling)
  Sender: FDA-Public Use
  Company Number: US-009507513-1211USA002997

PATIENT
  Sex: Male

DRUGS (3)
  1. PROPECIA [Suspect]
     Indication: ANDROGENETIC ALOPECIA
     Dosage: 1 MG, QD
     Route: 048
     Dates: start: 20081125, end: 20090807
  2. PROPECIA [Suspect]
     Indication: ALOPECIA
  3. FINASTERIDE [Suspect]
     Indication: ALOPECIA
     Dosage: 5 MG, UNK
     Route: 048
     Dates: start: 20090807, end: 20120719

REACTIONS (22)
  - Anxiety [Not Recovered/Not Resolved]
  - Sexual dysfunction [Not Recovered/Not Resolved]
  - Genital disorder male [Unknown]
  - Fatigue [Unknown]
  - Phimosis [Unknown]
  - Orgasm abnormal [Unknown]
  - Semen volume decreased [Unknown]
  - Testicular pain [Unknown]
  - Erectile dysfunction [Unknown]
  - Drug administration error [Unknown]
  - Lethargy [Unknown]
  - Erectile dysfunction [Unknown]
  - Painful erection [Unknown]
  - Depression [Unknown]
  - Penis disorder [Unknown]
  - Blood triglycerides increased [Unknown]
  - Prostatitis [Recovering/Resolving]
  - Cystitis interstitial [Recovering/Resolving]
  - Pelvic pain [Recovering/Resolving]
  - Urine analysis abnormal [Unknown]
  - Prostate induration [Unknown]
  - Penile pain [Unknown]
